FAERS Safety Report 5131163-0 (Version None)
Quarter: 2006Q3

REPORT INFORMATION
  Report Type: 
  Country: None (occurrence: None)
  Receive Date: 20060830
  Receipt Date: 20050929
  Transmission Date: 20061208
  Serious: Yes (Life-Threatening)
  Sender: FDA-Public Use
  Company Number: 200511824BWH

PATIENT
  Age: 67 Year
  Sex: Male

DRUGS (3)
  1. TRASYLOL [Suspect]
     Indication: ATRIAL SEPTAL DEFECT REPAIR
     Dosage: SEE IMAGE
     Route: 042
     Dates: start: 20050816
  2. TRASYLOL [Suspect]
     Indication: MITRAL VALVE REPLACEMENT
     Dosage: SEE IMAGE
     Route: 042
     Dates: start: 20050816
  3. TRASYLOL [Suspect]
     Dosage: INTRAVENOUS DRIP
     Route: 041
     Dates: start: 20050816

REACTIONS (4)
  - ANAPHYLACTIC REACTION [None]
  - ANAPHYLACTIC SHOCK [None]
  - BLOOD PRESSURE DECREASED [None]
  - CARDIAC ARREST [None]
